FAERS Safety Report 7522926-2 (Version None)
Quarter: 2011Q2

REPORT INFORMATION
  Report Type: 
  Country: None (occurrence: None)
  Receive Date: 20110603
  Receipt Date: 20110520
  Transmission Date: 20111010
  Serious: Yes (Other)
  Sender: FDA-Public Use
  Company Number: PHHY2011CA44743

PATIENT
  Sex: Male

DRUGS (1)
  1. DESFERAL [Suspect]
     Indication: SICKLE CELL ANAEMIA
     Dosage: UNK
     Route: 042

REACTIONS (4)
  - IRON OVERLOAD [None]
  - DRUG INTOLERANCE [None]
  - HYPERSENSITIVITY [None]
  - LOCAL REACTION [None]
